FAERS Safety Report 9135440 (Version 1)
Quarter: 2013Q1

REPORT INFORMATION
  Report Type: Spontaneous
  Country: US (occurrence: US)
  Receive Date: 20130304
  Receipt Date: 20130304
  Transmission Date: 20140127
  Serious: No
  Sender: FDA-Public Use
  Company Number: US-ENDO PHARMACEUTICALS INC.-ENDC20120068

PATIENT
  Age: 57 None
  Sex: Female

DRUGS (2)
  1. ENDOCET 10MG/325MG [Suspect]
     Indication: BREAKTHROUGH PAIN
     Dosage: 40MG/1300MG
     Route: 048
  2. OXYCODONE [Concomitant]
     Indication: PAIN
     Dosage: 20 MG
     Route: 048

REACTIONS (2)
  - Epistaxis [Recovered/Resolved]
  - Drug effect decreased [Recovered/Resolved]
